FAERS Safety Report 9708382 (Version 1)
Quarter: 2013Q4

REPORT INFORMATION
  Report Type: Spontaneous
  Country: US (occurrence: US)
  Receive Date: 20131125
  Receipt Date: 20131125
  Transmission Date: 20140711
  Serious: No
  Sender: FDA-Public Use
  Company Number: US-BAYER-2013-143555

PATIENT
  Age: 72 Year
  Sex: Female
  Weight: 81 kg

DRUGS (6)
  1. ALEVE CAPLET [Suspect]
     Indication: BACK PAIN
     Dosage: 1 DF, UNK
     Route: 048
     Dates: end: 201311
  2. WARFARIN [Concomitant]
  3. ATENOLOL [Concomitant]
  4. HYDROCHLOROTHIAZIDE [Concomitant]
  5. NORVASC [Concomitant]
  6. DIOVAN [Concomitant]

REACTIONS (4)
  - Dyspnoea [Recovered/Resolved]
  - Fluid retention [Recovered/Resolved]
  - Oedema peripheral [Not Recovered/Not Resolved]
  - Incorrect drug administration duration [None]
